FAERS Safety Report 20564100 (Version 2)
Quarter: 2022Q1

REPORT INFORMATION
  Report Type: Report from Study
  Country: GB (occurrence: GB)
  Receive Date: 20220308
  Receipt Date: 20220314
  Transmission Date: 20220423
  Serious: Yes (Hospitalization, Other)
  Sender: FDA-Public Use
  Company Number: GB-CELLTRION INC.-2022GB002543

PATIENT

DRUGS (43)
  1. TRASTUZUMAB [Suspect]
     Active Substance: TRASTUZUMAB
     Indication: Breast cancer metastatic
     Dosage: 651 MG, EVERY 3 WEEKS (PHARMACEUTICAL DOSE FORM: 230, CUMULATIVE DOSE TO FIRST REACTION: 44297.707 M
     Route: 041
     Dates: start: 20171129, end: 20210903
  2. TRASTUZUMAB [Suspect]
     Active Substance: TRASTUZUMAB
     Dosage: 651 MG, EVERY 3 WEEKS (PHARMACEUTICAL DOSE FORM: 230, CUMULATIVE DOSE TO FIRST REACTION: 44297.707 M
     Route: 041
     Dates: start: 20171129, end: 20210903
  3. TRASTUZUMAB [Suspect]
     Active Substance: TRASTUZUMAB
     Dosage: 651 MG, EVERY 3 WEEKS (PHARMACEUTICAL DOSE FORM: 230, CUMULATIVE DOSE TO FIRST REACTION: 44297.707 M
     Route: 041
     Dates: start: 20171129, end: 20210903
  4. TRASTUZUMAB [Suspect]
     Active Substance: TRASTUZUMAB
     Dosage: 882 MG, EVERY 3 WEEKS (PHARMACEUTICAL DOSE FORM: 230; CUMULATIVE DOSE TO FIRST REACTION: 60898.25 MG
     Route: 041
     Dates: start: 20171108, end: 20171129
  5. TRASTUZUMAB [Suspect]
     Active Substance: TRASTUZUMAB
     Dosage: 882 MG, EVERY 3 WEEKS (PHARMACEUTICAL DOSE FORM: 230; CUMULATIVE DOSE TO FIRST REACTION: 60898.25 MG
     Route: 041
     Dates: start: 20171108, end: 20171129
  6. TRASTUZUMAB [Suspect]
     Active Substance: TRASTUZUMAB
     Dosage: 882 MG, EVERY 3 WEEKS (PHARMACEUTICAL DOSE FORM: 230; CUMULATIVE DOSE TO FIRST REACTION: 60898.25 MG
     Route: 041
     Dates: start: 20171108, end: 20171129
  7. TRASTUZUMAB [Suspect]
     Active Substance: TRASTUZUMAB
     Dosage: 600 MG, EVERY 3 WEEKS (PHARMACEUTICAL DOSE FORM: 230; CUMULATIVE DOSE TO FIRST REACTION: 371.42856 M
     Route: 041
     Dates: start: 20211015
  8. TRASTUZUMAB [Suspect]
     Active Substance: TRASTUZUMAB
     Dosage: 600 MG, EVERY 3 WEEKS (PHARMACEUTICAL DOSE FORM: 230; CUMULATIVE DOSE TO FIRST REACTION: 371.42856 M
     Route: 041
     Dates: start: 20211015
  9. TRASTUZUMAB [Suspect]
     Active Substance: TRASTUZUMAB
     Dosage: 600 MG, EVERY 3 WEEKS (PHARMACEUTICAL DOSE FORM: 230; CUMULATIVE DOSE TO FIRST REACTION: 371.42856 M
     Route: 041
     Dates: start: 20211015
  10. DOCETAXEL [Suspect]
     Active Substance: DOCETAXEL
     Indication: Breast cancer metastatic
     Dosage: 148 MG, EVERY 3 WEEKS
     Route: 042
     Dates: start: 20171108, end: 20180131
  11. PERTUZUMAB [Suspect]
     Active Substance: PERTUZUMAB
     Indication: Breast cancer metastatic
     Dosage: 600 MG, EVERY 3 WEEKS (PHARMACEUTICAL DOSE FORM: 230; CUMULATIVE DOSE TO FIRST REACTION: 371.42856 M
     Route: 042
     Dates: start: 20211015
  12. PERTUZUMAB [Suspect]
     Active Substance: PERTUZUMAB
     Dosage: 600 MG, EVERY 3 WEEKS (PHARMACEUTICAL DOSE FORM: 230; CUMULATIVE DOSE TO FIRST REACTION: 371.42856 M
     Route: 042
     Dates: start: 20211015
  13. PERTUZUMAB [Suspect]
     Active Substance: PERTUZUMAB
     Dosage: 600 MG, EVERY 3 WEEKS (PHARMACEUTICAL DOSE FORM: 230; CUMULATIVE DOSE TO FIRST REACTION: 371.42856 M
     Route: 042
     Dates: start: 20211015
  14. PERTUZUMAB [Suspect]
     Active Substance: PERTUZUMAB
     Dosage: 840 MG, EVERY 3 WEEKS (PHARMACEUTICAL DOSE FORM: 230; CUMULATIVE DOSE TO FIRST REACTION: 57998.332 M
     Route: 042
     Dates: start: 20171108, end: 20171129
  15. PERTUZUMAB [Suspect]
     Active Substance: PERTUZUMAB
     Dosage: 840 MG, EVERY 3 WEEKS (PHARMACEUTICAL DOSE FORM: 230; CUMULATIVE DOSE TO FIRST REACTION: 57998.332 M
     Route: 042
     Dates: start: 20171108, end: 20171129
  16. PERTUZUMAB [Suspect]
     Active Substance: PERTUZUMAB
     Dosage: 840 MG, EVERY 3 WEEKS (PHARMACEUTICAL DOSE FORM: 230; CUMULATIVE DOSE TO FIRST REACTION: 57998.332 M
     Route: 042
     Dates: start: 20171108, end: 20171129
  17. PERTUZUMAB [Suspect]
     Active Substance: PERTUZUMAB
     Dosage: 420 MG, EVERY 3 WEEKS (PHARMACEUTICAL DOSE FORM: 230; CUMULATIVE DOSE TO FIRST REACTION: 28579.166 M
     Route: 042
     Dates: start: 20171129, end: 20210924
  18. PERTUZUMAB [Suspect]
     Active Substance: PERTUZUMAB
     Dosage: 420 MG, EVERY 3 WEEKS (PHARMACEUTICAL DOSE FORM: 230; CUMULATIVE DOSE TO FIRST REACTION: 28579.166 M
     Route: 042
     Dates: start: 20171129, end: 20210924
  19. PERTUZUMAB [Suspect]
     Active Substance: PERTUZUMAB
     Dosage: 420 MG, EVERY 3 WEEKS (PHARMACEUTICAL DOSE FORM: 230; CUMULATIVE DOSE TO FIRST REACTION: 28579.166 M
     Route: 042
     Dates: start: 20171129, end: 20210924
  20. CALCIUM CARBONATE [Concomitant]
     Active Substance: CALCIUM CARBONATE
     Dosage: 2 UNK, QD; 1 TABLET (PHARMACEUTICAL DOSE FORM: 245)
     Route: 048
  21. BECLOMETHASONE DIPROPIONATE [Concomitant]
     Active Substance: BECLOMETHASONE DIPROPIONATE
     Dosage: 2 UNK, QD (2 PUFF)
     Route: 050
  22. CLONAZEPAM [Concomitant]
     Active Substance: CLONAZEPAM
     Dosage: 250 MG, QD (PHARMACEUTICAL DOSE FORM: 245)
     Route: 048
     Dates: start: 202006
  23. ERYTHROMYCIN [Concomitant]
     Active Substance: ERYTHROMYCIN
     Indication: Vascular device infection
     Dosage: 2000 MG, QD; PHARMACEUTICAL DOSE FORM: 245
     Route: 048
     Dates: start: 2020, end: 202007
  24. LACTULOSE [Concomitant]
     Active Substance: LACTULOSE
     Dosage: 20 ML, EVERY 1 DAY
     Route: 048
  25. LINEZOLID [Concomitant]
     Active Substance: LINEZOLID
     Indication: Vascular device infection
     Dosage: 1200 MG, EVERY 1 DAY (PHARMACEUTICAL DOSE FORM: 245)
     Route: 048
     Dates: start: 20191125, end: 20191130
  26. METFORMIN [Concomitant]
     Active Substance: METFORMIN HYDROCHLORIDE
     Dosage: 1000 MG, EVERY 1 DAY (PHARMACEUTICAL DOSE FORM: 245)
     Route: 065
  27. MIRTAZAPINE [Concomitant]
     Active Substance: MIRTAZAPINE
     Dosage: 45 MG, EVERY 1 DAY (PHARMACEUTICAL DOSE FORM: 245)
     Route: 048
  28. MORPHINE [Concomitant]
     Active Substance: MORPHINE
     Indication: Diarrhoea
     Dosage: 5 MG
     Route: 042
     Dates: start: 20181002, end: 20181002
  29. MORPHINE [Concomitant]
     Active Substance: MORPHINE
     Indication: Vomiting
     Dosage: UNK
  30. NITROFURANTOIN [Concomitant]
     Active Substance: NITROFURANTOIN
     Indication: Urinary tract infection
     Dosage: 4 MG
     Route: 042
     Dates: start: 20181002, end: 20181002
  31. OMEPRAZOLE [Concomitant]
     Active Substance: OMEPRAZOLE
     Dosage: 40 MG, EVERY 1 DAY (PHARMACEUTICAL DOSE FORM: 5)
     Route: 048
     Dates: start: 2017
  32. ONDANSETRON [Concomitant]
     Active Substance: ONDANSETRON
     Indication: Diarrhoea
     Dosage: 4 MG
     Route: 042
     Dates: start: 20181002, end: 20181002
  33. ONDANSETRON [Concomitant]
     Active Substance: ONDANSETRON
     Indication: Vomiting
     Dosage: UNK
  34. OXYCODONE [Concomitant]
     Active Substance: OXYCODONE
     Dosage: 220 MG, EVERY 1 DAY (PHARMACEUTICAL DOSE FORM: 245)
     Route: 048
  35. QUETIAPINE [Concomitant]
     Active Substance: QUETIAPINE
     Indication: Depressed mood
     Dosage: 150 MG, EVERY 1 DAY (PHARMACEUTICAL DOSE FORM: 245)
     Route: 048
     Dates: start: 2020
  36. QUETIAPINE [Concomitant]
     Active Substance: QUETIAPINE
     Dosage: 100 MG, EVERY 1 DAY (PHARMACEUTICAL DOSE FORM: 245)
     Route: 048
     Dates: start: 2020
  37. RAMIPRIL [Concomitant]
     Active Substance: RAMIPRIL
     Dosage: 1.25 MG, EVERY 1 DAY (PHARMACEUTICAL DOSE FORM: 245)
     Route: 048
  38. ALBUTEROL [Concomitant]
     Active Substance: ALBUTEROL
     Dosage: 1 UNK, PRN; 2 PUFF
     Route: 050
  39. SIMVASTATIN [Concomitant]
     Active Substance: SIMVASTATIN
     Dosage: 40 MG, EVERY 1 DAY (PHARMACEUTICAL DOSE FORM: 245)
     Route: 048
  40. SODIUM PICOSULFATE [Concomitant]
     Active Substance: SODIUM PICOSULFATE
     Indication: Constipation
     Dosage: 1 UNK, EVERY 1 DAY (10 OTHER)
     Route: 048
  41. SODIUM PICOSULFATE [Concomitant]
     Active Substance: SODIUM PICOSULFATE
     Dosage: 1 UNK, EVERY 1 DAY (10 OTHER)
     Route: 048
  42. VANCOMYCIN [Concomitant]
     Active Substance: VANCOMYCIN
     Indication: Vascular device infection
     Dosage: 3500 MG, EVERY 1 DAY; PHARMACEUTICAL DOSE FORM:245
     Route: 048
     Dates: start: 20200612, end: 202006
  43. CLENIL [BECLOMETASONE DIPROPIONATE] [Concomitant]

REACTIONS (5)
  - Retching [Unknown]
  - Vascular device infection [Recovered/Resolved]
  - Abdominal pain [Recovered/Resolved]
  - Diarrhoea [Unknown]
  - Pyrexia [Unknown]

NARRATIVE: CASE EVENT DATE: 20211028
